FAERS Safety Report 5035971-6 (Version None)
Quarter: 2006Q2

REPORT INFORMATION
  Report Type: 
  Country: None (occurrence: None)
  Receive Date: 20060526
  Receipt Date: 20060412
  Transmission Date: 20061013
  Serious: No
  Sender: FDA-Public Use
  Company Number: 224073

PATIENT
  Age: 39 Year
  Sex: Female

DRUGS (3)
  1. RAPTIVA [Suspect]
     Indication: PSORIASIS
     Dosage: 1 ML, 1/WEEK, SUBCUTANEOUS
     Route: 058
     Dates: start: 20040701
  2. VITAMINS (VITAMINS NOS) [Concomitant]
  3. ACETAMINOPHEN [Concomitant]

REACTIONS (2)
  - FATIGUE [None]
  - IRRITABILITY [None]
